FAERS Safety Report 8278015-5 (Version None)
Quarter: 2012Q2

REPORT INFORMATION
  Report Type: 
  Country: None (occurrence: None)
  Receive Date: 20120412
  Receipt Date: 20120411
  Transmission Date: 20120825
  Serious: Yes (Hospitalization)
  Sender: FDA-Public Use
  Company Number: US-AMGEN-USACT2012006409

PATIENT
  Age: 70 Year
  Sex: Male

DRUGS (12)
  1. PRILOSEC [Concomitant]
     Dosage: UNK
     Dates: start: 19960501
  2. ATENOLOL [Concomitant]
     Dosage: 25 MG, QD
     Dates: start: 19790401
  3. XGEVA [Suspect]
     Indication: BONE GIANT CELL TUMOUR
     Dosage: 120 MG, Q4WK
     Route: 058
     Dates: start: 20110913
  4. HYDROCHLOROTHIAZIDE [Concomitant]
     Dosage: 25 MG, QD
     Dates: start: 19970301
  5. LOVENOX [Concomitant]
     Dosage: UNK UNK, BID
     Dates: start: 20111225
  6. ASPIRIN [Concomitant]
     Dosage: 81 MG, QD
     Dates: start: 20080201
  7. COUMADIN [Concomitant]
     Dosage: 6 MG, QD
     Dates: start: 20080201
  8. AZITHROMYCIN [Concomitant]
     Dosage: 250 MG, QD
     Dates: start: 20111206
  9. GLYBURIDE [Concomitant]
     Dosage: 5 MG, QD
     Dates: start: 19900501
  10. LISINOPRIL [Concomitant]
     Dosage: 40 MG, QD
     Dates: start: 19810901
  11. SERTRALINE HYDROCHLORIDE [Concomitant]
     Dosage: 50 MG, QD
     Dates: start: 19750401
  12. SIMVASTATIN [Concomitant]
     Dosage: 80 MG, QD
     Dates: start: 19820201

REACTIONS (1)
  - BACTERAEMIA [None]
